FAERS Safety Report 15749840 (Version 1)
Quarter: 2018Q4

REPORT INFORMATION
  Report Type: Spontaneous
  Country: US (occurrence: US)
  Receive Date: 20181221
  Receipt Date: 20181221
  Transmission Date: 20190205
  Serious: No
  Sender: FDA-Public Use
  Company Number: US-ALKERMES INC.-ALK-2018-006893

PATIENT
  Age: 33 Year
  Sex: Male

DRUGS (1)
  1. VIVITROL [Suspect]
     Active Substance: NALTREXONE
     Indication: PRODUCT USED FOR UNKNOWN INDICATION
     Dosage: 380 MG, QMO
     Route: 030
     Dates: start: 20180919

REACTIONS (6)
  - Injection site reaction [Not Recovered/Not Resolved]
  - Hypokinesia [Recovered/Resolved]
  - Wrong technique in product usage process [Recovered/Resolved]
  - Injection site haemorrhage [Not Recovered/Not Resolved]
  - Loss of personal independence in daily activities [Recovered/Resolved]
  - Injection site pain [Not Recovered/Not Resolved]

NARRATIVE: CASE EVENT DATE: 20181210
